FAERS Safety Report 24378185 (Version 2)
Quarter: 2025Q4

REPORT INFORMATION
  Report Type: Spontaneous
  Country: CA (occurrence: None)
  Receive Date: 20240930
  Receipt Date: 20251126
  Transmission Date: 20260118
  Serious: Yes (Other)
  Sender: APOTEX
  Company Number: CA-APOTEX-2024AP011035

PATIENT
  Age: 59 Year
  Sex: Male

DRUGS (8)
  1. MYCOPHENOLIC ACID [Suspect]
     Active Substance: MYCOPHENOLIC ACID
     Indication: Immune thrombocytopenia
     Dosage: 1000 MILLIGRAM, BID
     Route: 065
  2. MYCOPHENOLIC ACID [Suspect]
     Active Substance: MYCOPHENOLIC ACID
     Dosage: 2 MILLIGRAM, QD
     Route: 065
  3. MYCOPHENOLIC ACID [Suspect]
     Active Substance: MYCOPHENOLIC ACID
     Dosage: UNK
     Route: 065
  4. PREDNISONE [Suspect]
     Active Substance: PREDNISONE
     Indication: Product used for unknown indication
     Dosage: UNK
     Route: 065
  5. RITUXIMAB [Suspect]
     Active Substance: RITUXIMAB
     Indication: Immune thrombocytopenia
     Dosage: 375 MILLIGRAM/SQ. METER
     Route: 065
  6. RITUXIMAB [Suspect]
     Active Substance: RITUXIMAB
     Dosage: UNK
     Route: 065
  7. MYCOPHENOLIC ACID [Suspect]
     Active Substance: MYCOPHENOLIC ACID
     Indication: Immune thrombocytopenia
     Dosage: 2000 MILLIGRAM, 1 EVERY 1 DAYS
  8. MYCOPHENOLIC ACID [Suspect]
     Active Substance: MYCOPHENOLIC ACID
     Dosage: 2 MILLIGRAM, 1 EVERY 1 DAYS

REACTIONS (5)
  - Platelet count decreased [Unknown]
  - Product use in unapproved indication [Unknown]
  - Off label use [Unknown]
  - Full blood count decreased [Unknown]
  - Therapy non-responder [Unknown]
